FAERS Safety Report 24078560 (Version 1)
Quarter: 2024Q3

REPORT INFORMATION
  Report Type: Spontaneous
  Country: CN (occurrence: CN)
  Receive Date: 20240711
  Receipt Date: 20240711
  Transmission Date: 20241017
  Serious: Yes (Other)
  Sender: STRIDES
  Company Number: CN-STRIDES ARCOLAB LIMITED-2024SP008229

PATIENT

DRUGS (7)
  1. PREDNISOLONE [Suspect]
     Active Substance: PREDNISOLONE
     Indication: Mantle cell lymphoma
     Dosage: 100 MILLIGRAM, QD (ON DAY 1 TO DAY 5 FOR EVERY 28 DAYS; FOR A TOTAL OF 6 CYCLES; INDUCTION THERAPY)
     Route: 048
  2. RITUXIMAB [Suspect]
     Active Substance: RITUXIMAB
     Indication: Mantle cell lymphoma
     Dosage: 375 MILLIGRAM/SQ. METER (ON DAY 0 FOR EVERY 28 DAYS; FOR A TOTAL OF 6 CYCLES; INDUCTION THERAPY)
     Route: 042
  3. RITUXIMAB [Suspect]
     Active Substance: RITUXIMAB
     Dosage: 375 MILLIGRAM/SQ. METER (ON DAY 0 FOR OR TWO TIMES; MAINTENANCE THERAPY)
     Route: 042
  4. BENDAMUSTINE [Suspect]
     Active Substance: BENDAMUSTINE
     Indication: Mantle cell lymphoma
     Dosage: 70 MILLIGRAM/SQ. METER (ON DAY 1 TO DAY 2 FOR EVERY 28 DAYS; FOR A TOTAL OF 6 CYCLES; INDUCTION THER
     Route: 042
  5. CYTARABINE [Suspect]
     Active Substance: CYTARABINE
     Indication: Mantle cell lymphoma
     Dosage: 400 MILLIGRAM/SQ. METER (ON DAY 1 TO DAY 3 FOR EVERY 28 DAYS; FOR A TOTAL OF 6 CYCLES; INDUCTION THE
     Route: 042
  6. IBRUTINIB [Suspect]
     Active Substance: IBRUTINIB
     Indication: Mantle cell lymphoma
     Dosage: 560 MILLIGRAM, QD (EVERY DAY FOR EVERY 28 DAYS; FOR A TOTAL OF 6 CYCLES; INDUCTION THERAPY)
     Route: 048
  7. IBRUTINIB [Suspect]
     Active Substance: IBRUTINIB
     Dosage: 560 MILLIGRAM, QD (EVERYDAY FOR A YEAR; AS A MAINTENANCE THERAPY)
     Route: 048

REACTIONS (2)
  - Malignant neoplasm progression [Unknown]
  - Drug ineffective [Unknown]
